FAERS Safety Report 5945976-6 (Version None)
Quarter: 2008Q4

REPORT INFORMATION
  Report Type: 
  Country: None (occurrence: None)
  Receive Date: 20081110
  Receipt Date: 20081103
  Transmission Date: 20090506
  Serious: Yes (Hospitalization)
  Sender: FDA-Public Use
  Company Number: GR-ABBOTT-08P-066-0485625-00

PATIENT
  Age: 64 Year
  Sex: Female

DRUGS (2)
  1. HUMIRA [Suspect]
     Indication: RHEUMATOID ARTHRITIS
     Dates: start: 20060101, end: 20080301
  2. METHYLPREDNISOLONE 16MG TAB [Concomitant]
     Indication: RHEUMATOID ARTHRITIS
     Dates: start: 20060101

REACTIONS (5)
  - ABNORMAL BEHAVIOUR [None]
  - APATHY [None]
  - BRADYKINESIA [None]
  - ENCEPHALITIS [None]
  - PYREXIA [None]
